FAERS Safety Report 16118481 (Version 1)
Quarter: 2019Q1

REPORT INFORMATION
  Report Type: Report from Study
  Country: CA (occurrence: CA)
  Receive Date: 20190326
  Receipt Date: 20190326
  Transmission Date: 20190418
  Serious: Yes (Hospitalization)
  Sender: FDA-Public Use
  Company Number: CA-BRISTOL-MYERS SQUIBB COMPANY-BMS-2019-014324

PATIENT
  Age: 55 Year
  Sex: Female

DRUGS (1)
  1. ABATACEPT [Suspect]
     Active Substance: ABATACEPT
     Indication: PSORIATIC ARTHROPATHY
     Dosage: 750 MG, Q4WK
     Route: 042
     Dates: start: 20190207

REACTIONS (7)
  - Nausea [Recovered/Resolved]
  - Intestinal polyp [Unknown]
  - Dizziness [Unknown]
  - Influenza [Unknown]
  - Hot flush [Recovered/Resolved]
  - Nasopharyngitis [Recovering/Resolving]
  - Headache [Unknown]

NARRATIVE: CASE EVENT DATE: 20190207
